FAERS Safety Report 9685430 (Version 1)
Quarter: 2013Q4

REPORT INFORMATION
  Report Type: Spontaneous
  Country: US (occurrence: None)
  Receive Date: 20131112
  Receipt Date: 20131112
  Transmission Date: 20140711
  Serious: Yes (Other)
  Sender: FDA-Public Use
  Company Number: None

PATIENT
  Age: 60 Year
  Sex: Female
  Weight: 90.72 kg

DRUGS (3)
  1. ALBUTEROL SULFATE [Suspect]
     Indication: ASTHMA
     Route: 055
     Dates: start: 20131002, end: 20131011
  2. ALBUTEROL SULFATE [Suspect]
     Indication: COUGH
     Route: 055
     Dates: start: 20131002, end: 20131011
  3. ALBUTEROL SULFATE [Suspect]
     Indication: WHEEZING
     Route: 055
     Dates: start: 20131002, end: 20131011

REACTIONS (2)
  - Increased viscosity of bronchial secretion [None]
  - Cough [None]
